FAERS Safety Report 25109639 (Version 2)
Quarter: 2025Q2

REPORT INFORMATION
  Report Type: Spontaneous
  Country: US (occurrence: US)
  Receive Date: 20250323
  Receipt Date: 20250402
  Transmission Date: 20250717
  Serious: No
  Sender: BAUSCH AND LOMB
  Company Number: US-BAUSCHBL-2025BNL004636

PATIENT
  Sex: Female

DRUGS (3)
  1. MIEBO [Suspect]
     Active Substance: PERFLUOROHEXYLOCTANE
     Indication: Product used for unknown indication
     Route: 065
     Dates: start: 20241125
  2. MURO 128 [Suspect]
     Active Substance: SODIUM CHLORIDE
     Indication: Corneal oedema
     Route: 047
     Dates: start: 202410
  3. THERATEARS [Concomitant]
     Active Substance: CARBOXYMETHYLCELLULOSE SODIUM
     Indication: Product used for unknown indication

REACTIONS (3)
  - Burning sensation [Unknown]
  - Product residue present [Unknown]
  - Product use issue [Unknown]

NARRATIVE: CASE EVENT DATE: 20240101
